FAERS Safety Report 18972584 (Version 6)
Quarter: 2022Q4

REPORT INFORMATION
  Report Type: Spontaneous
  Country: BR (occurrence: BR)
  Receive Date: 20210305
  Receipt Date: 20221107
  Transmission Date: 20230113
  Serious: Yes (Other)
  Sender: FDA-Public Use
  Company Number: BR-GLAXOSMITHKLINE-BR2019GSK012502

PATIENT

DRUGS (1)
  1. BENLYSTA [Suspect]
     Active Substance: BELIMUMAB
     Indication: Systemic lupus erythematosus
     Dosage: 120 MG
     Dates: start: 20181206

REACTIONS (19)
  - Systemic lupus erythematosus [Unknown]
  - Urinary tract infection [Unknown]
  - Dysuria [Unknown]
  - Weight decreased [Not Recovered/Not Resolved]
  - Polycystic ovaries [Unknown]
  - Hysterectomy [Unknown]
  - Malaise [Unknown]
  - Pain [Unknown]
  - Infection [Unknown]
  - Pain in extremity [Unknown]
  - Myalgia [Unknown]
  - Tendonitis [Unknown]
  - Influenza [Recovering/Resolving]
  - Tonsillitis [Unknown]
  - Pharyngitis [Unknown]
  - Calculus bladder [Recovered/Resolved]
  - Inappropriate schedule of product administration [Unknown]
  - Product availability issue [Unknown]
  - Product dose omission issue [Unknown]

NARRATIVE: CASE EVENT DATE: 20191001
